FAERS Safety Report 6177968-9 (Version None)
Quarter: 2009Q2

REPORT INFORMATION
  Report Type: 
  Country: None (occurrence: None)
  Receive Date: 20090504
  Receipt Date: 20090102
  Transmission Date: 20091009
  Serious: No
  Sender: FDA-Public Use
  Company Number: US-ALEXION-A200900002

PATIENT
  Sex: Female

DRUGS (4)
  1. SOLIRIS [Suspect]
     Indication: PAROXYSMAL NOCTURNAL HAEMOGLOBINURIA
     Dosage: 600 MEQ, QWK X4
     Route: 042
     Dates: start: 20070521, end: 20070511
  2. SOLIRIS [Suspect]
     Dosage: 900 MG, Q2WK
     Dates: start: 20070623
  3. NORVASC [Concomitant]
     Indication: BLOOD PRESSURE
     Dosage: 5 MG, QD
     Route: 048
  4. DEFERASIROX [Concomitant]
     Indication: BLOOD IRON INCREASED
     Dosage: UNK
     Route: 048

REACTIONS (3)
  - ARTICULAR DISC DISORDER [None]
  - MUSCULOSKELETAL STIFFNESS [None]
  - PAIN [None]
